FAERS Safety Report 18410801 (Version 1)
Quarter: 2020Q4

REPORT INFORMATION
  Report Type: Spontaneous
  Country: US (occurrence: US)
  Receive Date: 20201021
  Receipt Date: 20201021
  Transmission Date: 20210114
  Serious: Yes (Death)
  Sender: FDA-Public Use
  Company Number: None

PATIENT
  Age: 63 Year
  Sex: Female

DRUGS (16)
  1. HYDROXYCHLOROQUINE [Concomitant]
     Active Substance: HYDROXYCHLOROQUINE
     Dates: start: 20200720
  2. ATORVASTATIN [Concomitant]
     Active Substance: ATORVASTATIN
     Dates: start: 20200908
  3. ALBUTEROL. [Concomitant]
     Active Substance: ALBUTEROL
     Dates: start: 20200804
  4. METFORMIN [Concomitant]
     Active Substance: METFORMIN HYDROCHLORIDE
     Dates: start: 20200319
  5. GABAPENTIN. [Concomitant]
     Active Substance: GABAPENTIN
     Dates: start: 20200810
  6. SPIRONOLACTONE. [Concomitant]
     Active Substance: SPIRONOLACTONE
     Dates: start: 20200701
  7. POTASSIUM CHLORIDE. [Concomitant]
     Active Substance: POTASSIUM CHLORIDE
     Dates: start: 20200903
  8. ZAFIRLUKAST. [Concomitant]
     Active Substance: ZAFIRLUKAST
     Dates: start: 20200422
  9. TRAZODONE [Concomitant]
     Active Substance: TRAZODONE HYDROCHLORIDE
     Dates: start: 20200821
  10. ELIQUIS [Concomitant]
     Active Substance: APIXABAN
     Dates: start: 20191115
  11. LOSARTAN/HCTZ [Concomitant]
     Active Substance: HYDROCHLOROTHIAZIDE\LOSARTAN
     Dates: start: 20191231
  12. METOPROLOL. [Concomitant]
     Active Substance: METOPROLOL
     Dates: start: 20200523
  13. DULOXETINE. [Concomitant]
     Active Substance: DULOXETINE
     Dates: start: 20200323
  14. TORSEMIDE. [Concomitant]
     Active Substance: TORSEMIDE
     Dates: start: 20200819
  15. XOLAIR [Suspect]
     Active Substance: OMALIZUMAB
     Dosage: ?          OTHER FREQUENCY:EVERY 4 WEEKS;?
     Route: 058
     Dates: start: 20180717
  16. FLUTICASONE. [Concomitant]
     Active Substance: FLUTICASONE
     Dates: start: 20200520

REACTIONS (1)
  - Death [None]

NARRATIVE: CASE EVENT DATE: 20201001
